FAERS Safety Report 9290229 (Version 2)
Quarter: 2013Q2

REPORT INFORMATION
  Report Type: Spontaneous
  Country: US (occurrence: None)
  Receive Date: 20130510
  Receipt Date: 20130610
  Transmission Date: 20140414
  Serious: Yes (Hospitalization)
  Sender: FDA-Public Use
  Company Number: 13-02147

PATIENT
  Age: 54 Year
  Sex: Male

DRUGS (1)
  1. ASTHMANEFRIN [Suspect]
     Indication: ASTHMA
     Dosage: 3 INHALATIONS ONCE 054
     Route: 055
     Dates: start: 20130427

REACTIONS (9)
  - Unresponsive to stimuli [None]
  - Respiratory distress [None]
  - Chest pain [None]
  - Dizziness [None]
  - Hyperhidrosis [None]
  - Foaming at mouth [None]
  - Vomiting [None]
  - Chronic obstructive pulmonary disease [None]
  - Alcohol poisoning [None]
